FAERS Safety Report 9668798 (Version 2)
Quarter: 2014Q1

REPORT INFORMATION
  Report Type: Report from Study
  Country: CA (occurrence: CA)
  Receive Date: 20131105
  Receipt Date: 20140107
  Transmission Date: 20141002
  Serious: Yes (Hospitalization, Other)
  Sender: FDA-Public Use
  Company Number: CA-JNJFOC-20131016125

PATIENT
  Sex: Male
  Weight: 108.5 kg

DRUGS (20)
  1. REMICADE [Suspect]
     Indication: CROHN^S DISEASE
     Route: 042
     Dates: start: 20131231
  2. REMICADE [Suspect]
     Indication: CROHN^S DISEASE
     Route: 042
     Dates: start: 20131010
  3. REMICADE [Suspect]
     Indication: CROHN^S DISEASE
     Route: 042
     Dates: start: 20080807
  4. URSODIOL [Concomitant]
     Indication: HEPATIC ENZYME INCREASED
     Dosage: AS NECESSARY
     Route: 048
  5. PREDNISONE [Concomitant]
     Indication: GRANULOMATOSIS WITH POLYANGIITIS
     Route: 048
  6. CALCIUM [Concomitant]
     Indication: OSTEOPOROSIS
     Route: 048
  7. VITAMIN D [Concomitant]
     Indication: OSTEOPOROSIS
     Route: 048
  8. TRAZODONE [Concomitant]
     Indication: SLEEP DISORDER THERAPY
     Route: 048
  9. HYDROXYZINE [Concomitant]
     Route: 048
  10. TECTA [Concomitant]
     Route: 065
  11. MIRTAZAPINE [Concomitant]
     Indication: NAUSEA
     Dosage: AS NECESSARY
     Route: 065
  12. CIPRALEX [Concomitant]
     Indication: DEPRESSION
     Route: 048
  13. ASACOL [Concomitant]
     Indication: CROHN^S DISEASE
     Route: 065
  14. TYLENOL [Concomitant]
     Route: 065
  15. CODEINE [Concomitant]
     Route: 065
  16. ONDANSETRON [Concomitant]
     Indication: NAUSEA
     Dosage: AS NECESSARY
     Route: 048
  17. HYDROMORPHONE [Concomitant]
     Indication: PAIN
     Route: 048
  18. HYDROMORPHONE [Concomitant]
     Indication: PAIN
     Route: 048
  19. HYCORT ENEMA [Concomitant]
     Route: 065
  20. BOTOX [Concomitant]
     Indication: HEADACHE
     Route: 042

REACTIONS (6)
  - Clostridium difficile infection [Recovered/Resolved]
  - Cystitis [Recovered/Resolved]
  - Nephrolithiasis [Recovered/Resolved]
  - Abdominal pain upper [Recovered/Resolved]
  - Asthma [Recovered/Resolved]
  - Crohn^s disease [Unknown]
